FAERS Safety Report 13693115 (Version 2)
Quarter: 2017Q3

REPORT INFORMATION
  Report Type: Spontaneous
  Country: US (occurrence: US)
  Receive Date: 20170627
  Receipt Date: 20170713
  Transmission Date: 20171127
  Serious: Yes (Life-Threatening, Hospitalization, Other)
  Sender: FDA-Public Use
  Company Number: US-TORRENT-00003140

PATIENT
  Age: 15 Year
  Sex: Female

DRUGS (16)
  1. TOPIRAMATE. [Suspect]
     Active Substance: TOPIRAMATE
  2. QUETIAPINE FUMARATE. [Suspect]
     Active Substance: QUETIAPINE FUMARATE
  3. ARIPIPRAZOLE. [Suspect]
     Active Substance: ARIPIPRAZOLE
  4. CHLORPROMAZINE HYDROCHLORIDE. [Suspect]
     Active Substance: CHLORPROMAZINE HYDROCHLORIDE
  5. BENZATROPINE MESILATE [Suspect]
     Active Substance: BENZTROPINE
  6. VALPROATE SODIUM. [Suspect]
     Active Substance: VALPROATE SODIUM
  7. LITHIUM CARBONATE. [Suspect]
     Active Substance: LITHIUM CARBONATE
  8. GUANFACINE. [Suspect]
     Active Substance: GUANFACINE
  9. OLANZAPINE. [Suspect]
     Active Substance: OLANZAPINE
  10. HALOPERIDOL LACTATE. [Suspect]
     Active Substance: HALOPERIDOL LACTATE
  11. LAMOTRIGINE. [Suspect]
     Active Substance: LAMOTRIGINE
  12. ZIPRASIDONE HYDROCHLORIDE. [Suspect]
     Active Substance: ZIPRASIDONE HYDROCHLORIDE
  13. LORAZEPAM. [Suspect]
     Active Substance: LORAZEPAM
  14. PHENOBARBITAL. [Suspect]
     Active Substance: PHENOBARBITAL
  15. CLOZAPINE. [Suspect]
     Active Substance: CLOZAPINE
  16. PHENYTOIN SODIUM. [Suspect]
     Active Substance: PHENYTOIN SODIUM

REACTIONS (5)
  - Pneumothorax [Unknown]
  - Rib fracture [Unknown]
  - Catatonia [Unknown]
  - Neuroleptic malignant syndrome [Unknown]
  - Drug ineffective [Unknown]
